FAERS Safety Report 10386054 (Version 1)
Quarter: 2014Q3

REPORT INFORMATION
  Report Type: Spontaneous
  Country: CH (occurrence: CH)
  Receive Date: 20140814
  Receipt Date: 20140814
  Transmission Date: 20150326
  Serious: Yes (Hospitalization)
  Sender: FDA-Public Use
  Company Number: CH-ASTRAZENECA-2014SE58266

PATIENT
  Age: 79 Year
  Sex: Female

DRUGS (1)
  1. PEMZEK PLUS [Suspect]
     Active Substance: CANDESARTAN CILEXETIL\HYDROCHLOROTHIAZIDE
     Indication: ESSENTIAL HYPERTENSION
     Route: 048
     Dates: start: 2007, end: 20070303

REACTIONS (4)
  - Fatigue [None]
  - Nausea [None]
  - Headache [None]
  - Liver injury [Recovered/Resolved]

NARRATIVE: CASE EVENT DATE: 20140224
